FAERS Safety Report 25997465 (Version 1)
Quarter: 2025Q4

REPORT INFORMATION
  Report Type: Report from Study
  Country: EU (occurrence: EU)
  Receive Date: 20251104
  Receipt Date: 20251104
  Transmission Date: 20260117
  Serious: Yes (Hospitalization)
  Sender: ABBVIE
  Company Number: EU-ABBVIE-6531131

PATIENT
  Age: 61 Year
  Sex: Male

DRUGS (1)
  1. RINVOQ [Suspect]
     Active Substance: UPADACITINIB
     Indication: Rheumatoid arthritis
     Dosage: DOSE FORM: PROLONGED-RELEASE TABLET
     Route: 048
     Dates: start: 20200529

REACTIONS (1)
  - Knee arthroplasty [Recovering/Resolving]

NARRATIVE: CASE EVENT DATE: 20250714
